FAERS Safety Report 14901597 (Version 1)
Quarter: 2018Q2

REPORT INFORMATION
  Report Type: Spontaneous
  Country: US (occurrence: US)
  Receive Date: 20180516
  Receipt Date: 20180516
  Transmission Date: 20180711
  Serious: No
  Sender: FDA-Public Use
  Company Number: ALCN2014US005098

PATIENT
  Sex: Female

DRUGS (1)
  1. GENTEAL NIGHT-TIME PM [Suspect]
     Active Substance: MINERAL OIL\PETROLATUM
     Indication: CONGENITAL EYE DISORDER
     Dosage: 1 GTT, PRN
     Route: 047

REACTIONS (1)
  - Lacrimation increased [Recovered/Resolved]
